FAERS Safety Report 21301699 (Version 1)
Quarter: 2022Q3

REPORT INFORMATION
  Report Type: Spontaneous
  Country: US (occurrence: None)
  Receive Date: 20220906
  Receipt Date: 20220906
  Transmission Date: 20221027
  Serious: Yes (Life-Threatening)
  Sender: FDA-Public Use
  Company Number: None

PATIENT
  Age: 60 Year
  Sex: Male
  Weight: 116.1 kg

DRUGS (2)
  1. LEXISCAN [Suspect]
     Active Substance: REGADENOSON
     Indication: Cardiac stress test
     Dosage: OTHER FREQUENCY : IVP OVER 10 SECOND;?
     Route: 040
  2. Lexiscan IV [Concomitant]
     Dates: start: 20220829, end: 20220829

REACTIONS (8)
  - Chest pain [None]
  - Muscular weakness [None]
  - Dysarthria [None]
  - Aphasia [None]
  - Cerebrovascular accident [None]
  - Confusional state [None]
  - Headache [None]
  - Hypertension [None]

NARRATIVE: CASE EVENT DATE: 20220829
